FAERS Safety Report 5326811-6 (Version None)
Quarter: 2007Q2

REPORT INFORMATION
  Report Type: 
  Country: None (occurrence: None)
  Receive Date: 20070516
  Receipt Date: 20070507
  Transmission Date: 20071010
  Serious: Yes (Other)
  Sender: FDA-Public Use
  Company Number: US-PFIZER INC-2007038102

PATIENT
  Sex: Female

DRUGS (7)
  1. CHANTIX [Suspect]
     Indication: SMOKING CESSATION THERAPY
     Dosage: FREQ:DAILY
     Dates: start: 20070305, end: 20070401
  2. PREMARIN [Concomitant]
  3. LIPITOR [Concomitant]
  4. LISINOPRIL [Concomitant]
  5. ACETYLSALICYLIC ACID SRT [Concomitant]
  6. MOBIC [Concomitant]
     Indication: ARTHRITIS
  7. METAMUCIL-2 [Concomitant]

REACTIONS (12)
  - ABDOMINAL DISTENSION [None]
  - BLADDER DISORDER [None]
  - BOWEL MOVEMENT IRREGULARITY [None]
  - COLITIS ISCHAEMIC [None]
  - DIVERTICULITIS [None]
  - ENTEROCOLITIS INFECTIOUS [None]
  - FLATULENCE [None]
  - NEOPLASM MALIGNANT [None]
  - RECTAL DISCHARGE [None]
  - RECTAL FISSURE [None]
  - RECTAL HAEMORRHAGE [None]
  - URINARY INCONTINENCE [None]
